FAERS Safety Report 5925479-5 (Version None)
Quarter: 2008Q4

REPORT INFORMATION
  Report Type: 
  Country: None (occurrence: None)
  Receive Date: 20081021
  Receipt Date: 20081010
  Transmission Date: 20090506
  Serious: Yes (Life-Threatening, Hospitalization)
  Sender: FDA-Public Use
  Company Number: JP-EISAI MEDICAL RESEARCH-E2090-00542-SPO-JP

PATIENT
  Sex: Female

DRUGS (6)
  1. EXCEGRAN [Suspect]
     Indication: TEMPORAL LOBE EPILEPSY
     Dosage: UNKNOWN
     Route: 048
     Dates: start: 20030101, end: 20051016
  2. EXCEGRAN [Suspect]
     Route: 048
     Dates: start: 20051017, end: 20051017
  3. CLONAZEPAM [Suspect]
     Indication: EPILEPSY
     Dosage: UNKNOWN
     Route: 048
     Dates: start: 20030101, end: 20051016
  4. CLONAZEPAM [Suspect]
     Route: 048
     Dates: start: 20051017, end: 20051017
  5. HYDANTOIN [Concomitant]
  6. METHYLPREDNISOLONE [Concomitant]

REACTIONS (2)
  - ALTERED STATE OF CONSCIOUSNESS [None]
  - INTENTIONAL OVERDOSE [None]
